FAERS Safety Report 21663691 (Version 3)
Quarter: 2023Q1

REPORT INFORMATION
  Report Type: Spontaneous
  Country: US (occurrence: US)
  Receive Date: 20221130
  Receipt Date: 20230105
  Transmission Date: 20230417
  Serious: Yes (Hospitalization, Other)
  Sender: FDA-Public Use
  Company Number: US-Accord-287713

PATIENT
  Age: 57 Year
  Sex: Female
  Weight: 75.30 kg

DRUGS (50)
  1. GEMCITABINE [Suspect]
     Active Substance: GEMCITABINE
     Indication: Diffuse large B-cell lymphoma
     Route: 042
     Dates: start: 20221004, end: 20221103
  2. OXALIPLATIN [Suspect]
     Active Substance: OXALIPLATIN
     Indication: Diffuse large B-cell lymphoma
     Route: 042
     Dates: start: 20221004, end: 20221103
  3. EPCORITAMAB [Suspect]
     Active Substance: EPCORITAMAB
     Indication: Diffuse large B-cell lymphoma
     Dosage: PRIMING DOSE, SINGLE
     Route: 058
     Dates: start: 20221004, end: 20221004
  4. DEXAMETHASONE [Concomitant]
     Active Substance: DEXAMETHASONE
     Indication: Prophylaxis
     Route: 048
     Dates: start: 20221004
  5. ACYCLOVIR [Concomitant]
     Active Substance: ACYCLOVIR
     Dates: start: 20220914
  6. ALLOPURINOL [Concomitant]
     Active Substance: ALLOPURINOL
     Dates: start: 20221004
  7. ALTEPLASE [Concomitant]
     Active Substance: ALTEPLASE
     Dates: start: 20221103, end: 20221103
  8. AMLODIPINE [Concomitant]
     Active Substance: AMLODIPINE BESYLATE
     Dates: start: 20220914
  9. BACTRIM [Concomitant]
     Active Substance: SULFAMETHOXAZOLE\TRIMETHOPRIM
     Dates: start: 20220914
  10. CALCIUM CARBONATE\VITAMIN D [Concomitant]
     Active Substance: CALCIUM CARBONATE\VITAMIN D
     Dates: start: 20221021, end: 20221021
  11. CHLORHEXIDINE GLUCONATE [Concomitant]
     Active Substance: CHLORHEXIDINE GLUCONATE
     Dates: start: 20221020, end: 20221119
  12. COMPAZINE [Concomitant]
     Active Substance: PROCHLORPERAZINE MALEATE
     Dates: start: 20221004
  13. ENTECAVIR [Concomitant]
     Active Substance: ENTECAVIR
     Dates: start: 20220914
  14. INSULIN LISPRO [Concomitant]
     Active Substance: INSULIN LISPRO
     Dates: start: 20221019, end: 20221119
  15. LEVOFLOXACIN [Concomitant]
     Active Substance: LEVOFLOXACIN
     Dates: start: 20221021, end: 20221021
  16. MAGNESIUM [Concomitant]
     Active Substance: MAGNESIUM
     Dates: start: 20220914
  17. METFORMIN [Concomitant]
     Active Substance: METFORMIN HYDROCHLORIDE
     Dates: start: 20220914
  18. OMEPRAZOLE [Concomitant]
     Active Substance: OMEPRAZOLE
     Dates: start: 20221004
  19. ONDANSETRON [Concomitant]
     Active Substance: ONDANSETRON
     Dates: start: 20221004
  20. PALONOSETRON HYDROCHLORIDE [Concomitant]
     Active Substance: PALONOSETRON HYDROCHLORIDE
     Dates: start: 20221020, end: 20221123
  21. TRAMADOL [Concomitant]
     Active Substance: TRAMADOL
     Dates: start: 20221027, end: 20221120
  22. ALUMINUM HYDROXIDE\MAGNESIUM HYDROXIDE [Concomitant]
     Active Substance: ALUMINUM HYDROXIDE\MAGNESIUM HYDROXIDE
     Dates: start: 20221007
  23. DIPHENHYDRAMINE [Concomitant]
     Active Substance: DIPHENHYDRAMINE
     Indication: Premedication
     Route: 048
     Dates: start: 20221201
  24. ACETAMINOPHEN [Concomitant]
     Active Substance: ACETAMINOPHEN
     Indication: Premedication
     Route: 048
     Dates: start: 20221201
  25. SULFAMETHOXAZOLE\TRIMETHOPRIM [Concomitant]
     Active Substance: SULFAMETHOXAZOLE\TRIMETHOPRIM
     Dates: start: 20221027
  26. BUPIVACAINE [Concomitant]
     Active Substance: BUPIVACAINE
     Dates: start: 20221111, end: 20221111
  27. DILAUDID [Concomitant]
     Active Substance: HYDROMORPHONE HYDROCHLORIDE
     Dates: start: 20221111, end: 20221111
  28. FENTANYL [Concomitant]
     Active Substance: FENTANYL
     Dates: start: 20221111, end: 20221111
  29. IOHEXOL [Concomitant]
     Active Substance: IOHEXOL
     Dates: start: 20221109, end: 20221116
  30. KETAMINE [Concomitant]
     Active Substance: KETAMINE
     Dates: start: 20221111, end: 20221111
  31. LACTATED RINGERS SOLUTION [Concomitant]
     Active Substance: CALCIUM CHLORIDE\POTASSIUM CHLORIDE\SODIUM CHLORIDE\SODIUM LACTATE
     Dates: start: 20221111, end: 20221111
  32. MAGNESIUM OXIDE [Concomitant]
     Active Substance: MAGNESIUM OXIDE
     Dates: start: 20221118, end: 20221118
  33. MAGNESIUM SULFATE [Concomitant]
     Active Substance: MAGNESIUM SULFATE
     Dates: start: 20221111, end: 20221123
  34. MIDAZOLAM [Concomitant]
     Active Substance: MIDAZOLAM
     Dates: start: 20221111, end: 20221111
  35. PHENYLEPHRINE [Concomitant]
     Active Substance: PHENYLEPHRINE HYDROCHLORIDE
     Dates: start: 20221111, end: 20221111
  36. PROPOFOL [Concomitant]
     Active Substance: PROPOFOL
     Dates: start: 20221111, end: 20221111
  37. STERILE WATER [Concomitant]
     Active Substance: WATER
     Dates: start: 20221111, end: 20221111
  38. NEULASTA [Concomitant]
     Active Substance: PEGFILGRASTIM
     Dates: start: 20221201, end: 20221201
  39. LIDOCAINE [Concomitant]
     Active Substance: LIDOCAINE
     Dosage: ONCE
     Dates: start: 20221107, end: 20221107
  40. POTASSIUM CHLORIDE [Concomitant]
     Active Substance: POTASSIUM CHLORIDE
     Dates: start: 20221201, end: 20221201
  41. FLUDEOXYGLUCOSE F-18 [Concomitant]
     Active Substance: FLUDEOXYGLUCOSE F-18
     Dates: start: 20221201, end: 20221201
  42. LORAZEPAM [Concomitant]
     Active Substance: LORAZEPAM
     Dates: start: 20221201, end: 20221201
  43. EPCORITAMAB [Suspect]
     Active Substance: EPCORITAMAB
     Indication: Diffuse large B-cell lymphoma
     Route: 058
     Dates: start: 20221201
  44. GEMCITABINE [Suspect]
     Active Substance: GEMCITABINE
     Indication: Diffuse large B-cell lymphoma
     Route: 042
     Dates: start: 20221123
  45. OXALIPLATIN [Suspect]
     Active Substance: OXALIPLATIN
     Indication: Diffuse large B-cell lymphoma
     Route: 042
     Dates: start: 20221123
  46. EPCORITAMAB [Suspect]
     Active Substance: EPCORITAMAB
     Indication: Diffuse large B-cell lymphoma
     Dosage: FULL DOSE, SINGLE
     Route: 058
     Dates: start: 20221123
  47. DEXAMETHASONE [Concomitant]
     Active Substance: DEXAMETHASONE
     Indication: Prophylaxis
     Route: 048
     Dates: start: 20221103
  48. DEXAMETHASONE [Concomitant]
     Active Substance: DEXAMETHASONE
     Indication: Prophylaxis
     Route: 048
     Dates: start: 20221123
  49. EPCORITAMAB [Suspect]
     Active Substance: EPCORITAMAB
     Indication: Diffuse large B-cell lymphoma
     Dosage: INTERMEDIATE DOSE: 0.8MG SINGLE
     Route: 058
     Dates: start: 20221012, end: 20221012
  50. EPCORITAMAB [Suspect]
     Active Substance: EPCORITAMAB
     Indication: Diffuse large B-cell lymphoma
     Dosage: FULL DOSE: 48 MILLIGRAM WEEKLY END DATE 23-NOV-2022
     Route: 058
     Dates: start: 20221020, end: 20221103

REACTIONS (2)
  - Neutrophil count decreased [Recovered/Resolved]
  - Wound infection bacterial [Recovered/Resolved]

NARRATIVE: CASE EVENT DATE: 20221103
